FAERS Safety Report 23523915 (Version 4)
Quarter: 2024Q3

REPORT INFORMATION
  Report Type: Spontaneous
  Country: JP (occurrence: JP)
  Receive Date: 20240214
  Receipt Date: 20240725
  Transmission Date: 20241016
  Serious: Yes (Death)
  Sender: ABBVIE
  Company Number: JP-ABBVIE-5640273

PATIENT
  Age: 85 Year
  Sex: Female
  Weight: 42 kg

DRUGS (12)
  1. RINVOQ [Suspect]
     Active Substance: UPADACITINIB
     Indication: Rheumatoid arthritis
     Dosage: FORM STRENGTH: 15 MILLIGRAM
     Route: 048
     Dates: start: 20210713
  2. BARICITINIB [Concomitant]
     Active Substance: BARICITINIB
     Indication: COVID-19
     Dates: start: 20230827
  3. PIPERACILLIN AND TAZOBACTAM [Concomitant]
     Active Substance: PIPERACILLIN SODIUM\TAZOBACTAM SODIUM
     Indication: Product used for unknown indication
     Dates: start: 20230827
  4. IGURATIMOD [Concomitant]
     Active Substance: IGURATIMOD
     Indication: Rheumatoid arthritis
     Dosage: 25 MILLIGRAM
     Route: 048
     Dates: start: 20170314, end: 20170323
  5. IGURATIMOD [Concomitant]
     Active Substance: IGURATIMOD
     Indication: Rheumatoid arthritis
     Dosage: 100 MILLIGRAM
     Route: 048
     Dates: start: 20170324
  6. FOLIC ACID [Concomitant]
     Active Substance: FOLIC ACID
     Indication: Rheumatoid arthritis
     Dosage: 5 MILLIGRAM
     Route: 048
     Dates: start: 20201203
  7. REMDESIVIR [Concomitant]
     Active Substance: REMDESIVIR
     Indication: COVID-19
     Dates: start: 20230827
  8. RISEDRONATE SODIUM HEMI-PENTAHYDRATE [Concomitant]
     Active Substance: RISEDRONATE SODIUM HEMI-PENTAHYDRATE
     Indication: Osteoporosis
     Dosage: 17.5 MILLIGRAM
     Route: 048
     Dates: start: 20160810
  9. ALFACALCIDOL [Concomitant]
     Active Substance: ALFACALCIDOL
     Indication: Osteoporosis
     Dosage: 0.25 MICROGRAM
     Route: 048
     Dates: start: 20170222
  10. PREDNISOLONE [Suspect]
     Active Substance: PREDNISOLONE
     Indication: Rheumatoid arthritis
     Dosage: 5 MILLIGRAM
     Route: 048
     Dates: start: 20211020
  11. PREDNISOLONE [Suspect]
     Active Substance: PREDNISOLONE
     Indication: Rheumatoid arthritis
     Dosage: 4 MILLIGRAM
     Route: 048
     Dates: start: 20220518
  12. METHOTREXATE [Suspect]
     Active Substance: METHOTREXATE
     Indication: Rheumatoid arthritis
     Dosage: 6 MG ? 2 TIMES/DAY (MORNING: 4 MG , EVENING: 2 MG)
     Route: 048
     Dates: start: 20210206

REACTIONS (10)
  - COVID-19 [Fatal]
  - Acute respiratory distress syndrome [Fatal]
  - Limb injury [Unknown]
  - Interstitial lung disease [Fatal]
  - Joint arthroplasty [Unknown]
  - Staphylococcal bacteraemia [Unknown]
  - Hypoxia [Not Recovered/Not Resolved]
  - Lung opacity [Not Recovered/Not Resolved]
  - Device related infection [Unknown]
  - Device related infection [Unknown]

NARRATIVE: CASE EVENT DATE: 20230801
